FAERS Safety Report 13530999 (Version 1)
Quarter: 2017Q2

REPORT INFORMATION
  Report Type: Spontaneous
  Country: US (occurrence: US)
  Receive Date: 20170510
  Receipt Date: 20170510
  Transmission Date: 20170830
  Serious: Yes (Other)
  Sender: FDA-Public Use
  Company Number: US-WEST-WARD PHARMACEUTICALS CORP.-US-H14001-17-01387

PATIENT
  Age: 82 Year
  Sex: Male

DRUGS (2)
  1. ALPRAZOLAM. [Suspect]
     Active Substance: ALPRAZOLAM
     Indication: ANXIETY
     Route: 065
  2. MORPHINE EQUIVALENT DAILY DOSE (MEDD) [Suspect]
     Active Substance: MORPHINE
     Indication: PAIN
     Route: 048

REACTIONS (1)
  - Delirium [Unknown]
